FAERS Safety Report 9511424 (Version 1)
Quarter: 2013Q3

REPORT INFORMATION
  Report Type: Spontaneous
  Country: US (occurrence: None)
  Receive Date: 20130909
  Receipt Date: 20130909
  Transmission Date: 20140515
  Serious: No
  Sender: FDA-Public Use
  Company Number: None

PATIENT
  Age: 78 Year
  Sex: Female
  Weight: 75.3 kg

DRUGS (3)
  1. TUCKS FAST RELIEF [Suspect]
     Indication: PRURITUS
     Dates: start: 20130716, end: 20130726
  2. METOPROLOL [Concomitant]
  3. ALLEVIATE [Concomitant]

REACTIONS (3)
  - Burning sensation [None]
  - Pruritus [None]
  - Rash erythematous [None]
